FAERS Safety Report 20860881 (Version 1)
Quarter: 2022Q2

REPORT INFORMATION
  Report Type: Spontaneous
  Country: US (occurrence: None)
  Receive Date: 20220522
  Receipt Date: 20220522
  Transmission Date: 20220721
  Serious: No
  Sender: FDA-Public Use
  Company Number: None

PATIENT
  Age: 69 Year
  Sex: Male
  Weight: 66.15 kg

DRUGS (6)
  1. PAXLOVID [Suspect]
     Active Substance: NIRMATRELVIR\RITONAVIR
     Indication: COVID-19
     Dates: start: 20220510, end: 20220514
  2. ROSUVASTATIN [Concomitant]
     Active Substance: ROSUVASTATIN
  3. FLOMAX [Concomitant]
     Active Substance: TAMSULOSIN HYDROCHLORIDE
  4. KEPPRA [Concomitant]
     Active Substance: LEVETIRACETAM
  5. METOPROLOL [Concomitant]
     Active Substance: METOPROLOL
  6. FLONASE [Concomitant]
     Active Substance: FLUTICASONE PROPIONATE

REACTIONS (9)
  - Taste disorder [None]
  - Disease recurrence [None]
  - SARS-CoV-2 test positive [None]
  - Condition aggravated [None]
  - Pyrexia [None]
  - Headache [None]
  - Sinus congestion [None]
  - Parosmia [None]
  - Somnolence [None]

NARRATIVE: CASE EVENT DATE: 20220520
